FAERS Safety Report 5603372-5 (Version None)
Quarter: 2008Q1

REPORT INFORMATION
  Report Type: 
  Country: None (occurrence: None)
  Receive Date: 20080122
  Receipt Date: 20080107
  Transmission Date: 20080703
  Serious: Yes (Death, Hospitalization, Other)
  Sender: FDA-Public Use
  Company Number: A-CH2007-18164

PATIENT
  Age: 68 Year
  Sex: Female

DRUGS (8)
  1. TRACLEER [Suspect]
     Indication: PULMONARY HYPERTENSION
     Dosage: 125 MG, BID, ORAL
     Route: 048
  2. FUROSEMIDE [Concomitant]
  3. LEVOTHYROXINE SODIUM [Concomitant]
  4. PREGABALIN (PREGABALIN) [Concomitant]
  5. SPIRONOLACTONE [Concomitant]
  6. RAMIPRIL [Concomitant]
  7. LANSOPRAZOLE [Concomitant]
  8. FERROUS SULPHAGE (FERROUS SULPHATE) [Concomitant]

REACTIONS (4)
  - DYSPHAGIA [None]
  - FEELING ABNORMAL [None]
  - RENAL FAILURE ACUTE [None]
  - SEPSIS [None]
